FAERS Safety Report 18983150 (Version 3)
Quarter: 2021Q1

REPORT INFORMATION
  Report Type: Spontaneous
  Country: US (occurrence: US)
  Receive Date: 20210308
  Receipt Date: 20210330
  Transmission Date: 20210420
  Serious: Yes (Hospitalization, Other)
  Sender: FDA-Public Use
  Company Number: US-009507513-2103USA001345

PATIENT
  Age: 63 Year
  Sex: Male

DRUGS (6)
  1. KEYTRUDA [Suspect]
     Active Substance: PEMBROLIZUMAB
     Indication: RENAL CELL CARCINOMA
     Dosage: UNK
     Route: 042
     Dates: start: 2020
  2. VOTRIENT [Concomitant]
     Active Substance: PAZOPANIB HYDROCHLORIDE
     Dosage: UNK
  3. OPDIVO [Concomitant]
     Active Substance: NIVOLUMAB
     Dosage: UNK
  4. CABOMETYX [Concomitant]
     Active Substance: CABOZANTINIB S-MALATE
     Dosage: UNK
  5. LENVATINIB MESYLATE [Suspect]
     Active Substance: LENVATINIB MESYLATE
  6. EVEROLIMUS. [Suspect]
     Active Substance: EVEROLIMUS

REACTIONS (6)
  - Therapy non-responder [Unknown]
  - Malignant neoplasm progression [Recovering/Resolving]
  - Mucosal inflammation [Recovering/Resolving]
  - Drug ineffective [Unknown]
  - Toxicity to various agents [Unknown]
  - Dehydration [Unknown]

NARRATIVE: CASE EVENT DATE: 202103
